FAERS Safety Report 13591706 (Version 1)
Quarter: 2017Q2

REPORT INFORMATION
  Report Type: Spontaneous
  Country: US (occurrence: US)
  Receive Date: 20170530
  Receipt Date: 20170530
  Transmission Date: 20170830
  Serious: No
  Sender: FDA-Public Use
  Company Number: None

PATIENT
  Age: 46 Year
  Sex: Female
  Weight: 66.6 kg

DRUGS (6)
  1. BENADRYL [Concomitant]
     Active Substance: DIPHENHYDRAMINE HYDROCHLORIDE
  2. VANICREAM HC ANTI-ITCH [Suspect]
     Active Substance: HYDROCORTISONE ACETATE
     Indication: ECZEMA
     Route: 061
     Dates: start: 20170301, end: 20170527
  3. ORACEA [Concomitant]
     Active Substance: DOXYCYCLINE
  4. VITAMIN B12 [Concomitant]
     Active Substance: CYANOCOBALAMIN
  5. VITAMIN D3 [Concomitant]
     Active Substance: CHOLECALCIFEROL
  6. PREVICID [Concomitant]

REACTIONS (3)
  - Application site pruritus [None]
  - Application site irritation [None]
  - Application site erythema [None]

NARRATIVE: CASE EVENT DATE: 20170527
